FAERS Safety Report 7874025-8 (Version None)
Quarter: 2011Q4

REPORT INFORMATION
  Report Type: 
  Country: None (occurrence: None)
  Receive Date: 20111030
  Receipt Date: 20110513
  Transmission Date: 20120403
  Serious: No
  Sender: FDA-Public Use
  Company Number: US-AMGEN-USASP2011024997

PATIENT
  Sex: Female

DRUGS (2)
  1. ENBREL [Suspect]
     Indication: RHEUMATOID ARTHRITIS
     Dosage: 25 MG, UNK
     Dates: start: 20100419
  2. METHOTREXATE [Concomitant]

REACTIONS (6)
  - SKIN MASS [None]
  - JOINT EFFUSION [None]
  - FATIGUE [None]
  - ARTHROPATHY [None]
  - DYSPHONIA [None]
  - PAIN [None]
